FAERS Safety Report 8012175-6 (Version None)
Quarter: 2011Q4

REPORT INFORMATION
  Report Type: 
  Country: None (occurrence: None)
  Receive Date: 20111228
  Receipt Date: 20111222
  Transmission Date: 20120403
  Serious: Yes (Hospitalization)
  Sender: FDA-Public Use
  Company Number: JP-ABBOTT-11P-087-0717683-00

PATIENT
  Sex: Male
  Weight: 57 kg

DRUGS (13)
  1. OCTOTIAMINE_B2_B6_B12 COMBINED DRUG [Concomitant]
     Indication: MEDICAL DIET
     Route: 048
  2. SULFASALAZINE [Concomitant]
     Indication: PRODUCT USED FOR UNKNOWN INDICATION
     Dates: start: 20040923
  3. HUMIRA [Suspect]
     Indication: CROHN'S DISEASE
     Route: 058
     Dates: start: 20101225, end: 20101225
  4. HUMIRA [Suspect]
     Dates: start: 20110120, end: 20110331
  5. HUMIRA [Suspect]
     Dates: start: 20110512
  6. ADALAT [Suspect]
     Indication: BLOOD PRESSURE INCREASED
     Dosage: IN THE MORNING AND EVENING
     Route: 048
     Dates: start: 20110404, end: 20110407
  7. ASCORBIC ACID [Concomitant]
     Indication: MEDICAL DIET
     Route: 048
  8. FAMOTIDINE [Concomitant]
     Indication: GASTROINTESTINAL DISORDER
     Route: 048
  9. HUMIRA [Suspect]
     Dates: start: 20110106, end: 20110106
  10. AZATHIOPRINE [Concomitant]
     Indication: PRODUCT USED FOR UNKNOWN INDICATION
     Route: 048
     Dates: start: 20090618
  11. TPN [Concomitant]
     Indication: CROHN'S DISEASE
  12. MESALAMINE [Concomitant]
     Indication: PRODUCT USED FOR UNKNOWN INDICATION
     Route: 048
     Dates: start: 20040924
  13. SCOPOLAMINE BUTYLBROMIDE [Concomitant]
     Indication: GASTROINTESTINAL DISORDER
     Route: 048
     Dates: end: 20110406

REACTIONS (10)
  - BLOOD PRESSURE INCREASED [None]
  - FLUSHING [None]
  - SUPRAVENTRICULAR TACHYCARDIA [None]
  - CONDITION AGGRAVATED [None]
  - CORONARY ARTERY DISEASE [None]
  - SOMATOFORM DISORDER [None]
  - HYPERTENSION [None]
  - CHEST DISCOMFORT [None]
  - PALPITATIONS [None]
  - DYSPNOEA [None]
